FAERS Safety Report 7047939-9 (Version None)
Quarter: 2010Q4

REPORT INFORMATION
  Report Type: 
  Country: None (occurrence: None)
  Receive Date: 20101014
  Receipt Date: 20101014
  Transmission Date: 20110411
  Serious: No
  Sender: FDA-Public Use
  Company Number: None

PATIENT
  Sex: Female

DRUGS (1)
  1. FORTEO [Suspect]
     Dosage: 600 MCG/2.4ML SC
     Route: 058

REACTIONS (2)
  - SENSITIVITY OF TEETH [None]
  - TEMPERATURE INTOLERANCE [None]
